FAERS Safety Report 9153019 (Version 1)
Quarter: 2013Q1

REPORT INFORMATION
  Report Type: Spontaneous
  Country: IN (occurrence: None)
  Receive Date: 20130201
  Receipt Date: 20130201
  Transmission Date: 20140127
  Serious: Yes (Other)
  Sender: FDA-Public Use
  Company Number: 2013010136

PATIENT
  Sex: Female

DRUGS (1)
  1. ZOLPIDEM (ZOLPIDEM) [Suspect]
     Indication: INSOMNIA

REACTIONS (2)
  - Drug abuse [None]
  - Drug tolerance [None]
